FAERS Safety Report 23638756 (Version 2)
Quarter: 2024Q4

REPORT INFORMATION
  Report Type: Spontaneous
  Country: US (occurrence: US)
  Receive Date: 20240315
  Receipt Date: 20241010
  Transmission Date: 20250115
  Serious: No
  Sender: BIOGEN
  Company Number: US-BIOGEN-2024BI01254337

PATIENT
  Age: 41 Year
  Sex: Male

DRUGS (1)
  1. QALSODY [Suspect]
     Active Substance: TOFERSEN
     Indication: Amyotrophic lateral sclerosis
     Route: 050

REACTIONS (3)
  - Post lumbar puncture syndrome [Recovered/Resolved]
  - Headache [Unknown]
  - Neurological procedural complication [Unknown]

NARRATIVE: CASE EVENT DATE: 20240304
